APPROVED DRUG PRODUCT: DIPIVEFRIN HYDROCHLORIDE
Active Ingredient: DIPIVEFRIN HYDROCHLORIDE
Strength: 0.1%
Dosage Form/Route: SOLUTION/DROPS;OPHTHALMIC
Application: A073636 | Product #001
Applicant: FALCON PHARMACEUTICALS LTD
Approved: Jun 30, 1994 | RLD: No | RS: No | Type: DISCN